FAERS Safety Report 6148643-1 (Version None)
Quarter: 2009Q2

REPORT INFORMATION
  Report Type: 
  Country: None (occurrence: None)
  Receive Date: 20090408
  Receipt Date: 20090327
  Transmission Date: 20091009
  Serious: Yes (Death)
  Sender: FDA-Public Use
  Company Number: JP-PFIZER INC-2009189606

PATIENT

DRUGS (12)
  1. XALATAN [Suspect]
     Indication: GLAUCOMA
     Dosage: 1 GTT, 1X/DAY
     Route: 047
     Dates: start: 20090212, end: 20090319
  2. ALL OTHER THERAPEUTIC PRODUCTS [Concomitant]
  3. CARTEOLOL HYDROCHLORIDE [Concomitant]
     Route: 047
  4. RAMOSETRON HYDROCHLORIDE [Concomitant]
     Route: 048
  5. DIAMOX [Concomitant]
     Route: 048
  6. ASPARA K [Concomitant]
     Route: 048
  7. CANDESARTAN CILEXETIL [Concomitant]
     Route: 048
  8. AMLODIPINE BESILATE [Concomitant]
     Route: 048
  9. EPALRESTAT [Concomitant]
  10. LASIX [Concomitant]
     Route: 048
  11. LOPEMIN [Concomitant]
     Route: 048
  12. ALBUMIN TANNATE [Concomitant]

REACTIONS (3)
  - ACUTE RESPIRATORY DISTRESS SYNDROME [None]
  - CARDIAC ARREST [None]
  - RESPIRATORY ARREST [None]
